FAERS Safety Report 8112169-6 (Version None)
Quarter: 2012Q1

REPORT INFORMATION
  Report Type: 
  Country: None (occurrence: None)
  Receive Date: 20120203
  Receipt Date: 20120123
  Transmission Date: 20120608
  Serious: Yes (Other)
  Sender: FDA-Public Use
  Company Number: JP-JNJFOC-20080405503

PATIENT
  Sex: Female
  Weight: 54 kg

DRUGS (10)
  1. FOLIC ACID [Concomitant]
     Indication: PROPHYLAXIS
     Route: 048
     Dates: start: 20070322, end: 20070409
  2. REMICADE [Suspect]
     Indication: RHEUMATOID ARTHRITIS
     Route: 042
     Dates: start: 20070402
  3. REMICADE [Suspect]
     Route: 042
     Dates: start: 20070320
  4. PREDNISOLONE [Suspect]
     Indication: JUVENILE ARTHRITIS
     Route: 048
     Dates: start: 20070407
  5. RHEUMATREX [Suspect]
     Indication: JUVENILE ARTHRITIS
     Route: 048
     Dates: start: 20070320, end: 20070409
  6. CORTICOSTEROIDS [Suspect]
     Indication: PRODUCT USED FOR UNKNOWN INDICATION
     Route: 065
  7. ADRENAL HORMONE PREPARATION [Concomitant]
     Indication: JUVENILE ARTHRITIS
     Route: 065
  8. REMICADE [Suspect]
     Indication: JUVENILE ARTHRITIS
     Route: 042
     Dates: start: 20070402
  9. REMICADE [Suspect]
     Route: 042
     Dates: start: 20070320
  10. PREDNISOLONE [Suspect]
     Route: 048
     Dates: start: 20070307, end: 20070406

REACTIONS (1)
  - CYTOMEGALOVIRUS ENTEROCOLITIS [None]
